FAERS Safety Report 7911271-9 (Version None)
Quarter: 2011Q4

REPORT INFORMATION
  Report Type: 
  Country: None (occurrence: None)
  Receive Date: 20111114
  Receipt Date: 20111103
  Transmission Date: 20120403
  Serious: Yes (Hospitalization)
  Sender: FDA-Public Use
  Company Number: GB-GENZYME-CLOF-1001830

PATIENT
  Sex: Male

DRUGS (4)
  1. EVOLTRA [Suspect]
     Indication: ACUTE LEUKAEMIA
     Dosage: UNK
     Route: 065
     Dates: start: 20080819
  2. CYTARABINE [Suspect]
     Indication: ACUTE LEUKAEMIA
     Dosage: UNK
     Route: 065
     Dates: start: 20080819
  3. DAUNORUBICIN HCL [Suspect]
     Indication: ACUTE LEUKAEMIA
     Dosage: UNK
     Route: 065
     Dates: start: 20080819
  4. HYDROXYUREA [Concomitant]
     Indication: PRODUCT USED FOR UNKNOWN INDICATION
     Dosage: UNK

REACTIONS (3)
  - PNEUMONIA [None]
  - DYSPHAGIA [None]
  - FUNGAL INFECTION [None]
